FAERS Safety Report 13890525 (Version 1)
Quarter: 2017Q3

REPORT INFORMATION
  Report Type: Spontaneous
  Country: US (occurrence: US)
  Receive Date: 20170822
  Receipt Date: 20170822
  Transmission Date: 20171127
  Serious: No
  Sender: FDA-Public Use
  Company Number: US-BRISTOL-MYERS SQUIBB COMPANY-BMS-2017-075065

PATIENT
  Sex: Female

DRUGS (1)
  1. NULOJIX [Suspect]
     Active Substance: BELATACEPT
     Indication: RENAL TRANSPLANT
     Dosage: 250 ML, UNK
     Route: 042

REACTIONS (10)
  - Palpitations [Unknown]
  - Ear congestion [Unknown]
  - Dyspnoea [Unknown]
  - Weight increased [Unknown]
  - Pruritus [Unknown]
  - Urine abnormality [Unknown]
  - Musculoskeletal stiffness [Unknown]
  - Paraesthesia [Unknown]
  - Joint stiffness [Unknown]
  - Acne [Unknown]
